FAERS Safety Report 9499620 (Version 1)
Quarter: 2013Q3

REPORT INFORMATION
  Report Type: Spontaneous
  Country: US (occurrence: None)
  Receive Date: 20130903
  Receipt Date: 20130903
  Transmission Date: 20140515
  Serious: No
  Sender: FDA-Public Use
  Company Number: None

PATIENT
  Sex: Female
  Weight: 78.43 kg

DRUGS (1)
  1. LEVOTHYROXINE [Suspect]

REACTIONS (1)
  - Unevaluable event [None]
